FAERS Safety Report 9988968 (Version 1)
Quarter: 2014Q1

REPORT INFORMATION
  Report Type: Report from Study
  Country: US (occurrence: US)
  Receive Date: 20140310
  Receipt Date: 20140310
  Transmission Date: 20141002
  Serious: No
  Sender: FDA-Public Use
  Company Number: US-ABBVIE-13P-163-1128902-00

PATIENT
  Age: 19 Year
  Sex: Female
  Weight: 44.49 kg

DRUGS (15)
  1. HUMIRA [Suspect]
     Indication: CROHN^S DISEASE
     Dates: start: 20130712
  2. HUMIRA [Suspect]
     Indication: RHEUMATOID ARTHRITIS
  3. ALLERTEC [Concomitant]
     Indication: PRODUCT USED FOR UNKNOWN INDICATION
  4. CELEBREX [Concomitant]
     Indication: PRODUCT USED FOR UNKNOWN INDICATION
  5. ESCITALOPRAM [Concomitant]
     Indication: PRODUCT USED FOR UNKNOWN INDICATION
  6. FOLIC ACID [Concomitant]
     Indication: PRODUCT USED FOR UNKNOWN INDICATION
  7. IRON [Concomitant]
     Indication: PRODUCT USED FOR UNKNOWN INDICATION
  8. METHOTREXATE [Concomitant]
     Indication: PRODUCT USED FOR UNKNOWN INDICATION
  9. MULTIPLE VITAMINS [Concomitant]
     Indication: PRODUCT USED FOR UNKNOWN INDICATION
  10. ONDANSETRON [Concomitant]
     Indication: PRODUCT USED FOR UNKNOWN INDICATION
  11. PENTAZA [Concomitant]
     Indication: PRODUCT USED FOR UNKNOWN INDICATION
  12. TRAZADONE [Concomitant]
     Indication: PRODUCT USED FOR UNKNOWN INDICATION
  13. TYLENOL [Concomitant]
     Indication: PRODUCT USED FOR UNKNOWN INDICATION
  14. VITAMIN D 3 [Concomitant]
     Indication: PRODUCT USED FOR UNKNOWN INDICATION
  15. VYVANSE [Concomitant]
     Indication: PRODUCT USED FOR UNKNOWN INDICATION

REACTIONS (1)
  - Fatigue [Recovered/Resolved]
